FAERS Safety Report 12262906 (Version 6)
Quarter: 2016Q3

REPORT INFORMATION
  Report Type: Spontaneous
  Country: US (occurrence: US)
  Receive Date: 20160413
  Receipt Date: 20160705
  Transmission Date: 20161109
  Serious: Yes (Hospitalization, Other)
  Sender: FDA-Public Use
  Company Number: US-PFIZER INC-2016195064

PATIENT
  Age: 49 Year
  Sex: Female
  Weight: 104.31 kg

DRUGS (6)
  1. SUTENT [Suspect]
     Active Substance: SUNITINIB MALATE
     Indication: GASTROINTESTINAL STROMAL TUMOUR
     Dosage: 50 MG, CYCLIC (28 DAYS ON/14 DAYS OFF)
     Dates: start: 20160319
  2. AMLODIPINE [Concomitant]
     Active Substance: AMLODIPINE BESYLATE
     Dosage: UNK
  3. COZAAR [Concomitant]
     Active Substance: LOSARTAN POTASSIUM
     Dosage: UNK
  4. ZOFRAN [Concomitant]
     Active Substance: ONDANSETRON HYDROCHLORIDE
     Dosage: UNK
  5. PROTONIX [Concomitant]
     Active Substance: PANTOPRAZOLE SODIUM
     Dosage: UNK
  6. HYDROCHLOROTHIAZIDE. [Concomitant]
     Active Substance: HYDROCHLOROTHIAZIDE
     Dosage: UNK

REACTIONS (18)
  - Asthenia [Unknown]
  - Dizziness [Unknown]
  - Vomiting [Unknown]
  - Dyspepsia [Unknown]
  - Pain in extremity [Recovering/Resolving]
  - Stomatitis [Recovering/Resolving]
  - Malaise [Unknown]
  - Blood pressure increased [Unknown]
  - Oral pain [Unknown]
  - Swelling face [Unknown]
  - Chromaturia [Unknown]
  - Oral mucosal eruption [Unknown]
  - Abdominal pain [Unknown]
  - Pain [Unknown]
  - Oral mucosal blistering [Recovered/Resolved]
  - Blister [Recovered/Resolved]
  - Eyelid oedema [Unknown]
  - Fatigue [Unknown]

NARRATIVE: CASE EVENT DATE: 2016
